FAERS Safety Report 9320894 (Version 1)
Quarter: 2013Q2

REPORT INFORMATION
  Report Type: Report from Study
  Country: BR (occurrence: BR)
  Receive Date: 20130531
  Receipt Date: 20130531
  Transmission Date: 20140414
  Serious: Yes (Other)
  Sender: FDA-Public Use
  Company Number: PHHY2013BR054665

PATIENT
  Sex: Male
  Weight: 83 kg

DRUGS (7)
  1. EXELON PATCH [Suspect]
     Indication: MEMORY IMPAIRMENT
     Dosage: 4.6 MG, (PATCH 5 CM)
     Route: 062
  2. EXELON PATCH [Suspect]
     Dosage: 9.5 MG, (PATCH 10 CM)
     Route: 062
  3. EXELON PATCH [Suspect]
     Dosage: 13.3 MG, (PATCH 15 CM), ONCE A DAY
     Route: 062
  4. NEURONTIN [Concomitant]
     Indication: LIMB DISCOMFORT
     Dosage: 600 MG, UNK
  5. BENERVA [Concomitant]
     Dosage: UNK UKN, UNK
  6. MEMANTINE [Concomitant]
     Indication: MEMORY IMPAIRMENT
     Dosage: UNK UKN, UNK
  7. CHOLESTEROL [Concomitant]
     Dosage: UNK UKN, UNK

REACTIONS (4)
  - Loss of control of legs [Not Recovered/Not Resolved]
  - Dysphagia [Not Recovered/Not Resolved]
  - Confusional state [Unknown]
  - Somnolence [Unknown]
